FAERS Safety Report 6066216-6 (Version None)
Quarter: 2009Q1

REPORT INFORMATION
  Report Type: 
  Country: None (occurrence: None)
  Receive Date: 20090205
  Receipt Date: 20090202
  Transmission Date: 20090719
  Serious: Yes (Death, Hospitalization)
  Sender: FDA-Public Use
  Company Number: PHHY2009DO03765

PATIENT
  Age: 60 Year
  Sex: Male

DRUGS (1)
  1. TEGRETOL [Suspect]
     Indication: POST PROCEDURAL COMPLICATION
     Dosage: UNK

REACTIONS (3)
  - DEATH [None]
  - MECHANICAL VENTILATION [None]
  - STEVENS-JOHNSON SYNDROME [None]
